FAERS Safety Report 8350620-7 (Version None)
Quarter: 2012Q2

REPORT INFORMATION
  Report Type: 
  Country: None (occurrence: None)
  Receive Date: 20120510
  Receipt Date: 20120504
  Transmission Date: 20120825
  Serious: Yes (Death, Hospitalization, Other)
  Sender: FDA-Public Use
  Company Number: FR-ELI_LILLY_AND_COMPANY-FR201205001536

PATIENT
  Sex: Male

DRUGS (4)
  1. ALIMTA [Suspect]
     Indication: LUNG ADENOCARCINOMA
     Dosage: 500 MG/M2, UNK
     Route: 042
     Dates: start: 20120209
  2. FOLIC ACID [Concomitant]
     Indication: PREMEDICATION
     Dosage: 0.4 MG, QD
     Route: 048
     Dates: start: 20120202
  3. VITAMIN B-12 [Concomitant]
     Indication: PREMEDICATION
     Dosage: 1000 UG/KG, QD
     Route: 030
     Dates: start: 20120202
  4. PREDNISOLONE [Concomitant]
     Indication: PREMEDICATION
     Dosage: 80 MG, QD
     Route: 048
     Dates: start: 20120208, end: 20120210

REACTIONS (15)
  - THROMBOCYTOPENIA [None]
  - DIARRHOEA [None]
  - INTESTINAL POLYP HAEMORRHAGE [None]
  - INCOHERENT [None]
  - HYPERTHERMIA [None]
  - RASH PAPULAR [None]
  - NEOPLASM PROGRESSION [None]
  - PURPURA [None]
  - OEDEMA PERIPHERAL [None]
  - ANAEMIA [None]
  - DISORIENTATION [None]
  - FALL [None]
  - ERYSIPELOID [None]
  - CEREBROVASCULAR ACCIDENT [None]
  - LEUKOPENIA [None]
